FAERS Safety Report 7752163-8 (Version None)
Quarter: 2011Q3

REPORT INFORMATION
  Report Type: 
  Country: None (occurrence: None)
  Receive Date: 20110915
  Receipt Date: 20110909
  Transmission Date: 20111222
  Serious: No
  Sender: FDA-Public Use
  Company Number: US-PFIZER INC-2011186216

PATIENT
  Sex: Male
  Weight: 86.168 kg

DRUGS (5)
  1. PRISTIQ [Suspect]
     Indication: ANXIETY
  2. PRISTIQ [Suspect]
     Indication: DEPRESSION
     Dosage: 50 MG, 1X/DAY
     Route: 048
     Dates: start: 20090901
  3. LORAZEPAM [Concomitant]
     Indication: ANXIETY
     Dosage: UNK
     Dates: start: 20110403
  4. ANDROGEL [Concomitant]
     Indication: HYPOGONADISM
     Dosage: UNK
     Dates: start: 20080101
  5. VIAGRA [Concomitant]
     Indication: ERECTILE DYSFUNCTION
     Dosage: UNK
     Dates: start: 20070101

REACTIONS (3)
  - WRONG TECHNIQUE IN DRUG USAGE PROCESS [None]
  - MEDICATION RESIDUE [None]
  - DIARRHOEA [None]
